FAERS Safety Report 4783026-8 (Version None)
Quarter: 2005Q3

REPORT INFORMATION
  Report Type: 
  Country: None (occurrence: None)
  Receive Date: 20050929
  Receipt Date: 20050914
  Transmission Date: 20060218
  Serious: Yes (Hospitalization)
  Sender: FDA-Public Use
  Company Number: GBWYE977314SEP05

PATIENT
  Sex: Female
  Weight: 81 kg

DRUGS (2)
  1. ENBREL [Suspect]
     Indication: RHEUMATOID ARTHRITIS
     Route: 058
     Dates: start: 20040915
  2. METHOTREXATE [Concomitant]

REACTIONS (2)
  - HAEMATURIA [None]
  - URINARY TRACT INFECTION [None]
